FAERS Safety Report 5506081-6 (Version None)
Quarter: 2007Q4

REPORT INFORMATION
  Report Type: 
  Country: None (occurrence: None)
  Receive Date: 20071101
  Receipt Date: 20071023
  Transmission Date: 20080405
  Serious: Yes (Disabling)
  Sender: FDA-Public Use
  Company Number: 17702

PATIENT
  Age: 63 Year
  Sex: Female
  Weight: 56 kg

DRUGS (8)
  1. FLUCONAZOLE [Suspect]
     Indication: MUCOSAL INFLAMMATION
     Dates: start: 20070426
  2. PACLITAXEL [Suspect]
     Indication: OVARIAN EPITHELIAL CANCER
     Dosage: 270 MG Q3W IV
     Route: 042
     Dates: start: 20070426, end: 20070724
  3. CARBOPLATIN [Concomitant]
  4. DICYCLOMINE HCL [Concomitant]
  5. METOCLOPRAMIDE [Concomitant]
  6. DOXYLAMINE [Concomitant]
  7. PYRIDOXINE [Concomitant]
  8. DOSULEPIN [Concomitant]

REACTIONS (2)
  - DRUG INTERACTION [None]
  - TOXIC SKIN ERUPTION [None]
